FAERS Safety Report 11903235 (Version 1)
Quarter: 2016Q1

REPORT INFORMATION
  Report Type: Spontaneous
  Country: US (occurrence: US)
  Receive Date: 20160110
  Receipt Date: 20160110
  Transmission Date: 20160526
  Serious: No
  Sender: FDA-Public Use
  Company Number: US-ASTRAZENECA-2016SE01390

PATIENT
  Sex: Female

DRUGS (2)
  1. ATACAND [Suspect]
     Active Substance: CANDESARTAN CILEXETIL
     Route: 048
  2. ATACAND [Suspect]
     Active Substance: CANDESARTAN CILEXETIL
     Dosage: GENERIC
     Route: 065

REACTIONS (2)
  - Drug intolerance [Unknown]
  - Adverse drug reaction [Unknown]
